FAERS Safety Report 5971353-8 (Version None)
Quarter: 2008Q4

REPORT INFORMATION
  Report Type: 
  Country: None (occurrence: None)
  Receive Date: 20081130
  Receipt Date: 20081123
  Transmission Date: 20090506
  Serious: Yes (Hospitalization, Disabling, Other)
  Sender: FDA-Public Use
  Company Number: US-PFIZER INC-2008099184

PATIENT
  Sex: Female
  Weight: 95.7 kg

DRUGS (7)
  1. CHANTIX [Suspect]
     Indication: SMOKING CESSATION THERAPY
     Dates: start: 20060101
  2. MIDODRINE [Concomitant]
     Indication: HYPOTENSION
  3. MIRAPEX [Concomitant]
     Indication: RESTLESS LEGS SYNDROME
  4. KLONOPIN [Concomitant]
     Indication: STRESS
  5. CRESTOR [Concomitant]
     Indication: BLOOD CHOLESTEROL INCREASED
  6. PRILOSEC [Concomitant]
     Indication: GASTROOESOPHAGEAL REFLUX DISEASE
  7. STOOL SOFTENER [Concomitant]

REACTIONS (11)
  - BACK PAIN [None]
  - BLADDER OPERATION [None]
  - CHEST PAIN [None]
  - CHOKING [None]
  - CHRONIC OBSTRUCTIVE PULMONARY DISEASE [None]
  - CONVULSION [None]
  - DRY MOUTH [None]
  - GLUCOSE TOLERANCE IMPAIRED [None]
  - INSOMNIA [None]
  - SJOGREN'S SYNDROME [None]
  - URINARY INCONTINENCE [None]
